FAERS Safety Report 4716766-7 (Version None)
Quarter: 2005Q3

REPORT INFORMATION
  Report Type: 
  Country: None (occurrence: None)
  Receive Date: 20050719
  Receipt Date: 20050708
  Transmission Date: 20060218
  Serious: Yes (Hospitalization)
  Sender: FDA-Public Use
  Company Number: US-KINGPHARMUSA00001-K200500926

PATIENT
  Age: 87 Year
  Sex: Female

DRUGS (7)
  1. ALTACE [Suspect]
     Indication: HYPERTENSION
     Dosage: 2.5 MG, QD
     Route: 048
     Dates: start: 20050210
  2. CORDARONE [Suspect]
     Indication: ATRIAL FIBRILLATION
     Route: 048
     Dates: end: 20050504
  3. LASIX [Concomitant]
  4. CATAPRES [Concomitant]
  5. POTASSIUM CHLORIDE [Concomitant]
     Route: 048
  6. XYZALL [Concomitant]
     Route: 048
  7. MIXTARD HUMAN 70/30 [Concomitant]
     Indication: DIABETES MELLITUS INSULIN-DEPENDENT

REACTIONS (2)
  - DERMATITIS PSORIASIFORM [None]
  - STRESS [None]
